FAERS Safety Report 15037127 (Version 1)
Quarter: 2018Q2

REPORT INFORMATION
  Report Type: Report from Study
  Country: CA (occurrence: CA)
  Receive Date: 20180620
  Receipt Date: 20180620
  Transmission Date: 20180711
  Serious: Yes (Hospitalization, Other)
  Sender: FDA-Public Use
  Company Number: CA-SA-2017SA111145

PATIENT
  Age: 32 Year
  Sex: Male

DRUGS (10)
  1. ALEMTUZUMAB [Suspect]
     Active Substance: ALEMTUZUMAB
     Dosage: 12 MG,QD
     Route: 041
     Dates: start: 20170612, end: 20170616
  2. ACICLOVIR [Concomitant]
     Active Substance: ACYCLOVIR
     Indication: PREMEDICATION
     Dosage: 200 MG,BID
     Route: 048
     Dates: start: 20170612
  3. PARACETAMOL [Concomitant]
     Active Substance: ACETAMINOPHEN
     Indication: PREMEDICATION
     Dosage: UNK UNK,PRN
     Route: 048
     Dates: start: 20170612
  4. METHYLPREDNISOLONE. [Concomitant]
     Active Substance: METHYLPREDNISOLONE
     Indication: PREMEDICATION
     Dosage: 1 G,UNK
     Route: 042
     Dates: start: 20170612, end: 20170616
  5. GRAVOL [Concomitant]
     Active Substance: DIMENHYDRINATE
     Indication: PREMEDICATION
     Dosage: 50 MG,UNK
     Route: 048
     Dates: start: 20170612, end: 20170616
  6. METAMUCIL REGULAR [Concomitant]
     Dosage: UNK UNK, PRN
  7. VITAMIN B12 [Concomitant]
     Active Substance: CYANOCOBALAMIN
     Dosage: UNK UNK, QD
  8. RANITIDINE. [Concomitant]
     Active Substance: RANITIDINE
     Indication: PREMEDICATION
     Dosage: 150 MG,BID
     Route: 048
     Dates: start: 20170612, end: 20170616
  9. SYMBICORT [Concomitant]
     Active Substance: BUDESONIDE\FORMOTEROL FUMARATE DIHYDRATE
     Dosage: UNK UNK,QD
     Route: 055
  10. BENADRYL [Concomitant]
     Active Substance: DIPHENHYDRAMINE HYDROCHLORIDE
     Indication: PREMEDICATION
     Dosage: 50 MG,UNK
     Route: 048
     Dates: start: 20170612, end: 20170616

REACTIONS (12)
  - Bradycardia [Recovered/Resolved]
  - Chest pain [Recovered/Resolved]
  - Gallbladder disorder [Recovered/Resolved]
  - Blood pressure decreased [Recovered/Resolved]
  - Multiple sclerosis relapse [Recovering/Resolving]
  - Lymphocyte count decreased [Recovered/Resolved]
  - Diplopia [Recovering/Resolving]
  - Balance disorder [Recovering/Resolving]
  - Chest discomfort [Recovered/Resolved]
  - Headache [Recovered/Resolved]
  - White blood cell count decreased [Recovered/Resolved]
  - Cognitive disorder [Recovering/Resolving]

NARRATIVE: CASE EVENT DATE: 20170612
